FAERS Safety Report 12961151 (Version 5)
Quarter: 2017Q1

REPORT INFORMATION
  Report Type: Spontaneous
  Country: US (occurrence: US)
  Receive Date: 20161121
  Receipt Date: 20170206
  Transmission Date: 20170428
  Serious: No
  Sender: FDA-Public Use
  Company Number: US-PFIZER INC-2016531207

PATIENT
  Age: 75 Year
  Sex: Female

DRUGS (2)
  1. IBRANCE [Suspect]
     Active Substance: PALBOCICLIB
     Indication: BREAST CANCER
     Dosage: 100 MG, CYCLIC (DAILY ON DAYS 1-21)
     Route: 048
     Dates: start: 20161004
  2. IBRANCE [Suspect]
     Active Substance: PALBOCICLIB
     Dosage: 100 MG, DAILY
     Route: 048
     Dates: start: 20161003

REACTIONS (6)
  - Eye pruritus [Unknown]
  - Rhinorrhoea [Unknown]
  - Lacrimation increased [Unknown]
  - Anaemia [Unknown]
  - Fatigue [Unknown]
  - Pruritus [Unknown]

NARRATIVE: CASE EVENT DATE: 20161114
